FAERS Safety Report 17894108 (Version 1)
Quarter: 2020Q2

REPORT INFORMATION
  Report Type: Spontaneous
  Country: ES (occurrence: ES)
  Receive Date: 20200615
  Receipt Date: 20200615
  Transmission Date: 20200714
  Serious: Yes (Other)
  Sender: FDA-Public Use
  Company Number: ES-TEVA-2020-ES-1247509

PATIENT
  Age: 75 Year
  Sex: Male
  Weight: 77 kg

DRUGS (23)
  1. SINTROM 4 MG COMPRIMIDOS [Concomitant]
     Active Substance: ACENOCOUMAROL
  2. MOVALIS 15 MG CAPSULAS [Concomitant]
  3. HIDROXICLOROQUINA (2143A) [Suspect]
     Active Substance: HYDROXYCHLOROQUINE
     Indication: CORONAVIRUS INFECTION
     Dates: start: 20200328, end: 20200402
  4. LORAZEPAM 5 MG COMPRIMIDO [Concomitant]
  5. MONTELUKAST 10 MG COMPRIMIDO [Concomitant]
     Active Substance: MONTELUKAST SODIUM
  6. LOPINAVIR/RITONAVIR ACCORD 200 MG/ 50 MG COMPRIMIDOS RECUBIERTOS CON P [Suspect]
     Active Substance: LOPINAVIR\RITONAVIR
     Indication: CORONAVIRUS INFECTION
     Dosage: 2 DOSAGE FORMS DAILY; ?400 MG EVERY 12 HOURS
     Route: 048
     Dates: start: 20200328, end: 20200406
  7. OPTOVITE B12 1.000 MICROGRAMOS SOLUCI?N INYECTABLE [Concomitant]
  8. VESICARE 5 MG COMPRIMIDOS RECUBIERTOS CON PELICULA [Concomitant]
  9. ALPRAZOLAM 2 MG COMPRIMIDO [Concomitant]
     Active Substance: ALPRAZOLAM
  10. RIVOTRIL 2 MG COMPRIMIDOS [Concomitant]
  11. CEFTRIAXONA (501A) [Suspect]
     Active Substance: CEFTRIAXONE
     Indication: CORONAVIRUS INFECTION
     Dosage: 2 GRAM DAILY;
     Route: 042
     Dates: start: 20200327, end: 20200406
  12. CEFTRIAXONA (501A) [Suspect]
     Active Substance: CEFTRIAXONE
     Indication: COVID-19 PNEUMONIA
  13. BUFOMIX EASYHALER 320 MICROGRAMOS//9 MICROGRAMOS/INHALACION POLVO PARA [Concomitant]
  14. CONDROSAN 400 MG CAPSULAS DURAS [Concomitant]
  15. PREDNISONA (886A) [Concomitant]
     Active Substance: PREDNISONE
  16. CLEXANE [Concomitant]
     Active Substance: ENOXAPARIN SODIUM
  17. AZITROMICINA (7019A) [Suspect]
     Active Substance: AZITHROMYCIN
     Indication: CORONAVIRUS INFECTION
     Dates: start: 20200327, end: 20200401
  18. LOPINAVIR/RITONAVIR ACCORD 200 MG/ 50 MG COMPRIMIDOS RECUBIERTOS CON P [Suspect]
     Active Substance: LOPINAVIR\RITONAVIR
     Indication: COVID-19 PNEUMONIA
  19. PARACETAMOL (12A) [Concomitant]
     Active Substance: ACETAMINOPHEN
  20. AXIAGO 20 MG COMPRIMIDOS GASTRORRESISTENTES [Concomitant]
  21. ATORVASTATINA 20 MG COMPRIMIDO [Concomitant]
     Active Substance: ATORVASTATIN
  22. LYRICA 150 MG CAPSULAS DURAS [Concomitant]
  23. DOCLIS RETARD 120 MG CAPSULAS DURAS DE LIBERACION PROLONGADA [Concomitant]

REACTIONS (2)
  - Hypertransaminasaemia [Recovered/Resolved]
  - Alanine aminotransferase increased [Recovered/Resolved]

NARRATIVE: CASE EVENT DATE: 20200406
